FAERS Safety Report 25414713 (Version 2)
Quarter: 2025Q2

REPORT INFORMATION
  Report Type: Report from Study
  Country: CA (occurrence: CA)
  Receive Date: 20250609
  Receipt Date: 20250627
  Transmission Date: 20250716
  Serious: Yes (Death, Hospitalization, Other)
  Sender: HLS THERAPEUTICS
  Company Number: CA-HLS-202501387

PATIENT
  Age: 66 Year
  Sex: Male

DRUGS (1)
  1. CLOZARIL [Suspect]
     Active Substance: CLOZAPINE
     Indication: Schizoaffective disorder
     Route: 065
     Dates: start: 19980615, end: 20250424

REACTIONS (7)
  - Anaemia [Fatal]
  - Product use in unapproved indication [Unknown]
  - Abscess [Fatal]
  - Ulcer [Fatal]
  - Blood creatinine increased [Fatal]
  - General physical health deterioration [Fatal]
  - Wound [Fatal]

NARRATIVE: CASE EVENT DATE: 20240501
